FAERS Safety Report 9654178 (Version 1)
Quarter: 2013Q4

REPORT INFORMATION
  Report Type: Spontaneous
  Country: US (occurrence: US)
  Receive Date: 20131029
  Receipt Date: 20131029
  Transmission Date: 20140711
  Serious: No
  Sender: FDA-Public Use
  Company Number: US-BIOGENIDEC-2013BI083649

PATIENT
  Age: 50 Year
  Sex: Male
  Weight: 94 kg

DRUGS (4)
  1. TECFIDERA [Suspect]
     Indication: MULTIPLE SCLEROSIS
     Dates: start: 20130718
  2. TECFIDERA [Suspect]
     Indication: MULTIPLE SCLEROSIS
     Route: 048
  3. TECFIDERA [Suspect]
     Indication: MULTIPLE SCLEROSIS
  4. AVONEX [Concomitant]
     Indication: MULTIPLE SCLEROSIS
     Route: 030

REACTIONS (8)
  - Gastric disorder [Not Recovered/Not Resolved]
  - Abdominal distension [Unknown]
  - Hyperhidrosis [Unknown]
  - Prescribed underdose [Unknown]
  - Flushing [Not Recovered/Not Resolved]
  - Dyspepsia [Unknown]
  - Vomiting [Not Recovered/Not Resolved]
  - Nausea [Unknown]
